FAERS Safety Report 11589192 (Version 1)
Quarter: 2015Q4

REPORT INFORMATION
  Report Type: Spontaneous
  Country: TR (occurrence: TR)
  Receive Date: 20151002
  Receipt Date: 20151002
  Transmission Date: 20160304
  Serious: Yes (Hospitalization)
  Sender: FDA-Public Use
  Company Number: PHHY2015TR116435

PATIENT
  Sex: Female

DRUGS (4)
  1. NIFEDIPINE. [Suspect]
     Active Substance: NIFEDIPINE
     Dosage: 60 MG, UNK
     Route: 048
  2. RITODRINE HCL [Suspect]
     Active Substance: RITODRINE HYDROCHLORIDE
     Indication: UTERINE HYPERTONUS
     Route: 042
  3. NIFEDIPINE. [Suspect]
     Active Substance: NIFEDIPINE
     Indication: PRODUCT USED FOR UNKNOWN INDICATION
     Dosage: 20 MG, UNK
     Route: 048
  4. BETAMETHASONE. [Suspect]
     Active Substance: BETAMETHASONE
     Indication: PULMONARY FUNCTION TEST
     Route: 065

REACTIONS (3)
  - Macroamylasaemia [Unknown]
  - Maternal exposure timing unspecified [Unknown]
  - Premature delivery [None]
